FAERS Safety Report 5388414-7 (Version None)
Quarter: 2007Q3

REPORT INFORMATION
  Report Type: 
  Country: None (occurrence: None)
  Receive Date: 20070716
  Receipt Date: 20070709
  Transmission Date: 20080115
  Serious: Yes (Hospitalization)
  Sender: FDA-Public Use
  Company Number: PHNU2007DE00788

PATIENT
  Age: 59 Year
  Sex: Male

DRUGS (1)
  1. ZOMETA [Suspect]
     Indication: METASTASES TO BONE
     Dosage: UNK, UNK
     Dates: start: 20040506, end: 20041007

REACTIONS (3)
  - JAW OPERATION [None]
  - ORAL SURGERY [None]
  - OSTEOMYELITIS [None]
